FAERS Safety Report 5482950-0 (Version None)
Quarter: 2007Q4

REPORT INFORMATION
  Report Type: 
  Country: None (occurrence: None)
  Receive Date: 20071011
  Receipt Date: 20070926
  Transmission Date: 20080405
  Serious: Yes (Hospitalization)
  Sender: FDA-Public Use
  Company Number: DE-BOEHRINGER INGELHEIM PHARMACEUTICALS, INC.-2007-BP-22531YA

PATIENT
  Sex: Male

DRUGS (1)
  1. TAMSULOSIN OCAS (BLIND) [Suspect]
     Indication: BENIGN PROSTATIC HYPERPLASIA
     Route: 048
     Dates: start: 20041005, end: 20070820

REACTIONS (1)
  - TACHYCARDIA [None]
